FAERS Safety Report 12440230 (Version 1)
Quarter: 2016Q2

REPORT INFORMATION
  Report Type: Spontaneous
  Country: US (occurrence: US)
  Receive Date: 20160606
  Receipt Date: 20160606
  Transmission Date: 20160815
  Serious: No
  Sender: FDA-Public Use
  Company Number: US-AMGEN-USASP2015135091

PATIENT
  Age: 70 Day
  Sex: Male

DRUGS (2)
  1. EPOGEN [Suspect]
     Active Substance: ERYTHROPOIETIN
     Indication: ANAEMIA
     Dosage: UNK UNK, UNK
     Route: 065
     Dates: start: 20151209
  2. EPOGEN [Suspect]
     Active Substance: ERYTHROPOIETIN
     Dosage: 966U (DOSED AT 300U/KG), 3 TIMES PER WEEK
     Route: 058

REACTIONS (4)
  - Nucleated red cells [Unknown]
  - Blast cells present [Unknown]
  - Lymphocyte morphology abnormal [Unknown]
  - Off label use [Unknown]
